FAERS Safety Report 9243021 (Version 2)
Quarter: 2013Q2

REPORT INFORMATION
  Report Type: Spontaneous
  Country: AU (occurrence: AU)
  Receive Date: 20130419
  Receipt Date: 20130606
  Transmission Date: 20140414
  Serious: Yes (Other)
  Sender: FDA-Public Use
  Company Number: AU-ASTRAZENECA-2013SE25606

PATIENT
  Sex: Female

DRUGS (3)
  1. LOSEC [Suspect]
     Route: 048
     Dates: start: 20121012, end: 20130406
  2. LOSEC [Suspect]
     Route: 048
     Dates: start: 20130414
  3. VALIUM [Concomitant]
     Indication: STRESS

REACTIONS (3)
  - Epistaxis [Not Recovered/Not Resolved]
  - Headache [Not Recovered/Not Resolved]
  - Off label use [Not Recovered/Not Resolved]
